FAERS Safety Report 5064980-6 (Version None)
Quarter: 2006Q3

REPORT INFORMATION
  Report Type: 
  Country: None (occurrence: None)
  Receive Date: 20060726
  Receipt Date: 20060718
  Transmission Date: 20061208
  Serious: Yes (Death)
  Sender: FDA-Public Use
  Company Number: HQWYE101118JUL06

PATIENT
  Age: 84 Year
  Sex: Female

DRUGS (3)
  1. PANTOPRAZOLE SODIUM [Suspect]
     Indication: DUODENAL ULCER
     Dosage: 40 MG 1X PER 1 DAY
     Route: 048
     Dates: start: 20051018, end: 20050101
  2. PANTOPRAZOLE SODIUM [Suspect]
     Indication: GASTROOESOPHAGEAL REFLUX DISEASE
     Dosage: 40 MG 1X PER 1 DAY
     Route: 048
     Dates: start: 20051018, end: 20050101
  3. PANTOPRAZOLE SODIUM [Suspect]
     Indication: HELICOBACTER INFECTION
     Dosage: 40 MG 1X PER 1 DAY
     Route: 048
     Dates: start: 20051018, end: 20050101

REACTIONS (1)
  - DEATH [None]
